APPROVED DRUG PRODUCT: CYPROHEPTADINE HYDROCHLORIDE
Active Ingredient: CYPROHEPTADINE HYDROCHLORIDE
Strength: 4MG
Dosage Form/Route: TABLET;ORAL
Application: A089057 | Product #001
Applicant: HALSEY DRUG CO INC
Approved: Jul 3, 1986 | RLD: No | RS: No | Type: DISCN